FAERS Safety Report 22139870 (Version 1)
Quarter: 2023Q1

REPORT INFORMATION
  Report Type: Spontaneous
  Country: RO (occurrence: RO)
  Receive Date: 20230327
  Receipt Date: 20230327
  Transmission Date: 20230418
  Serious: Yes (Other)
  Sender: FDA-Public Use
  Company Number: RO-AMGEN-ROUSP2023050029

PATIENT
  Age: 53 Year
  Sex: Female

DRUGS (6)
  1. VECTIBIX [Suspect]
     Active Substance: PANITUMUMAB
     Indication: Colorectal cancer metastatic
     Dosage: UNK UNK, Q2WK
     Route: 042
     Dates: start: 20220106
  2. FLUOROURACIL [Suspect]
     Active Substance: FLUOROURACIL
     Indication: Colorectal cancer metastatic
     Dosage: UNK UNK, Q2WK
     Route: 042
     Dates: start: 20211207
  3. FLUOROURACIL [Suspect]
     Active Substance: FLUOROURACIL
     Dosage: UNK
     Route: 065
     Dates: start: 202206, end: 202208
  4. OXALIPLATIN [Suspect]
     Active Substance: OXALIPLATIN
     Indication: Colorectal cancer metastatic
     Dosage: UNK UNK, Q2WK
     Route: 042
     Dates: start: 20211207
  5. LEUCOVORIN [Suspect]
     Active Substance: LEUCOVORIN
     Indication: Colorectal cancer metastatic
     Dosage: UNK, Q2WK
     Route: 042
     Dates: start: 20211207
  6. LEUCOVORIN [Suspect]
     Active Substance: LEUCOVORIN
     Dosage: UNK, Q2WK
     Route: 065
     Dates: start: 202206, end: 202208

REACTIONS (4)
  - Hepatic lesion [Unknown]
  - Neuropathy peripheral [Unknown]
  - Dermatitis acneiform [Recovered/Resolved]
  - Therapy partial responder [Unknown]

NARRATIVE: CASE EVENT DATE: 20220101
